FAERS Safety Report 5086847-X (Version None)
Quarter: 2006Q3

REPORT INFORMATION
  Report Type: 
  Country: None (occurrence: None)
  Receive Date: 20060818
  Receipt Date: 20060731
  Transmission Date: 20061208
  Serious: Yes (Hospitalization, Other)
  Sender: FDA-Public Use
  Company Number: US200601000844

PATIENT
  Age: 52 Year
  Sex: 0
  Weight: 112.5 kg

DRUGS (5)
  1. ZYPREXA [Suspect]
     Indication: BIPOLAR DISORDER
     Dosage: 10 MG
     Dates: start: 19970701
  2. PROPRANOLOL [Concomitant]
  3. LITHIUM [Concomitant]
  4. PAROXETINE HCL [Concomitant]
  5. ATENOLOL [Concomitant]

REACTIONS (13)
  - BLOOD CHOLESTEROL INCREASED [None]
  - BLOOD TRIGLYCERIDES INCREASED [None]
  - CATHETERISATION CARDIAC [None]
  - DIABETES MELLITUS NON-INSULIN-DEPENDENT [None]
  - HYPERGLYCAEMIA [None]
  - HYPERTENSION [None]
  - INSULIN RESISTANCE [None]
  - METABOLIC DISORDER [None]
  - OBESITY [None]
  - PANCREATITIS [None]
  - VISION BLURRED [None]
  - WEIGHT DECREASED [None]
  - WEIGHT INCREASED [None]
